FAERS Safety Report 8468858-7 (Version None)
Quarter: 2012Q2

REPORT INFORMATION
  Report Type: 
  Country: None (occurrence: None)
  Receive Date: 20120626
  Receipt Date: 20111028
  Transmission Date: 20120825
  Serious: Yes (Other)
  Sender: FDA-Public Use
  Company Number: US-ROCHE-1008269

PATIENT
  Sex: Male

DRUGS (4)
  1. SELENIUM [Concomitant]
  2. KRILL OIL [Concomitant]
  3. COQ-10 [Concomitant]
  4. ZELBORAF [Suspect]
     Indication: MALIGNANT MELANOMA
     Route: 048
     Dates: start: 20110922

REACTIONS (16)
  - RASH [None]
  - AGEUSIA [None]
  - NEOPLASM SKIN [None]
  - INSOMNIA [None]
  - ABDOMINAL DISCOMFORT [None]
  - SUNBURN [None]
  - SKIN EXFOLIATION [None]
  - HAIR GROWTH ABNORMAL [None]
  - FATIGUE [None]
  - ARTHRALGIA [None]
  - SKIN PAPILLOMA [None]
  - DRY SKIN [None]
  - ALOPECIA [None]
  - WEIGHT DECREASED [None]
  - DECREASED APPETITE [None]
  - PAIN OF SKIN [None]
